FAERS Safety Report 12326368 (Version 4)
Quarter: 2016Q2

REPORT INFORMATION
  Report Type: Spontaneous
  Country: US (occurrence: US)
  Receive Date: 20160503
  Receipt Date: 20160624
  Transmission Date: 20160815
  Serious: Yes (Hospitalization, Other)
  Sender: FDA-Public Use
  Company Number: US-009507513-1604USA017232

PATIENT
  Age: 30 Year
  Sex: Female
  Weight: 58.96 kg

DRUGS (2)
  1. IMPLANON [Suspect]
     Active Substance: ETONOGESTREL
     Dosage: ONE ROD FOR THREE YEARS
     Route: 058
     Dates: start: 20091104, end: 20121116
  2. IMPLANON [Suspect]
     Active Substance: ETONOGESTREL
     Indication: CONTRACEPTION
     Dosage: 68 MG, ONE ROD FOR THREE YEARS
     Route: 058
     Dates: start: 20121116, end: 20160610

REACTIONS (6)
  - Device deployment issue [Recovered/Resolved]
  - Incorrect drug administration duration [Recovered/Resolved]
  - Device difficult to use [Recovered/Resolved]
  - Surgery [Recovered/Resolved]
  - Menstruation normal [Unknown]
  - Complication associated with device [Recovered/Resolved]

NARRATIVE: CASE EVENT DATE: 20151114
